FAERS Safety Report 5283677-0 (Version None)
Quarter: 2007Q2

REPORT INFORMATION
  Report Type: 
  Country: None (occurrence: None)
  Receive Date: 20070402
  Receipt Date: 20070322
  Transmission Date: 20071010
  Serious: Yes (Death, Hospitalization)
  Sender: FDA-Public Use
  Company Number: CH-ROCHE-482473

PATIENT
  Age: 72 Year
  Sex: Female

DRUGS (6)
  1. CAPECITABINE [Suspect]
     Dosage: REPORTED AS DOSE/CYCLE 2300MG, NO. OF CYCLES 6.
     Route: 065
     Dates: start: 20070124, end: 20070129
  2. OXALIPLATIN [Suspect]
     Dosage: REPORTED AS DOSE/CYCLE 175MG, NO. OF CYCLES 6.
     Route: 065
     Dates: start: 20070124, end: 20070129
  3. GEMCITABINE [Suspect]
     Dosage: REPORTED AS DOSE/CYCLE 1300MG, NO. OF CYCLES 6.
     Route: 065
     Dates: start: 20070124, end: 20070129
  4. IMPORTAL [Concomitant]
     Route: 048
     Dates: start: 20060828
  5. ROCEPHIN [Concomitant]
     Route: 042
     Dates: start: 20070129, end: 20070203
  6. METRONIDAZOLE [Concomitant]
     Route: 042
     Dates: start: 20070129, end: 20070203

REACTIONS (3)
  - DEHYDRATION [None]
  - PNEUMONIA ASPIRATION [None]
  - SYNCOPE [None]
